FAERS Safety Report 8119373 (Version 8)
Quarter: 2013Q3

REPORT INFORMATION
  Report Type: Report from Study
  Country: ZA (occurrence: ZA)
  Receive Date: 20110902
  Receipt Date: 20130712
  Transmission Date: 20140515
  Serious: Yes (Hospitalization)
  Sender: FDA-Public Use
  Company Number: ZA-BRISTOL-MYERS SQUIBB COMPANY-16003741

PATIENT
  Age: 65 Year
  Sex: Male

DRUGS (5)
  1. GLUCOPHAGE [Suspect]
     Indication: DIABETES MELLITUS
     Dosage: UNKN-29OCT12:500MG, 30OCT12-ONGOIN:2G
  2. GLICLAZIDE [Suspect]
     Indication: DIABETES MELLITUS
     Dosage: UNKN-10NOV11:160MG, 11NOV11-29OCT12:240MG, 30OCT12-ONGOIN: 320MG
  3. PLACEBO [Suspect]
     Indication: TYPE 2 DIABETES MELLITUS
     Dosage: INTERUUPTED ON 23AUG2011
     Dates: start: 20110513, end: 20110823
  4. LISINOPRIL + HCTZ [Suspect]
  5. ASPIRIN [Concomitant]
     Dosage: 1DF:{100MG

REACTIONS (1)
  - Pancreatitis [Recovered/Resolved]
